FAERS Safety Report 11773875 (Version 5)
Quarter: 2016Q2

REPORT INFORMATION
  Report Type: Report from Study
  Country: US (occurrence: US)
  Receive Date: 20151124
  Receipt Date: 20160427
  Transmission Date: 20160815
  Serious: Yes (Hospitalization)
  Sender: FDA-Public Use
  Company Number: US-VERTEX PHARMACEUTICALS-2015-004165

PATIENT
  Age: 13 Year
  Sex: Female

DRUGS (8)
  1. PULMOZYME [Concomitant]
     Active Substance: DORNASE ALFA
  2. SYMBICORT [Concomitant]
     Active Substance: BUDESONIDE\FORMOTEROL FUMARATE DIHYDRATE
  3. ORKAMBI [Suspect]
     Active Substance: IVACAFTOR\LUMACAFTOR
     Indication: CYSTIC FIBROSIS
     Dosage: UNK
     Route: 048
     Dates: start: 20150921
  4. MVI [Concomitant]
     Active Substance: VITAMINS
  5. ORKAMBI [Suspect]
     Active Substance: IVACAFTOR\LUMACAFTOR
     Dosage: UNK
     Route: 048
     Dates: start: 201603
  6. CAYSTON [Concomitant]
     Active Substance: AZTREONAM
  7. ALBUTEROL. [Concomitant]
     Active Substance: ALBUTEROL
  8. PANCREATIC ENZYMES [Concomitant]
     Active Substance: UNSPECIFIED INGREDIENT

REACTIONS (10)
  - Pharyngitis [Not Recovered/Not Resolved]
  - Cystic fibrosis [Unknown]
  - Influenza [Unknown]
  - Dyspnoea [Unknown]
  - Pharyngitis streptococcal [Recovered/Resolved]
  - Sinus disorder [Unknown]
  - Nausea [Unknown]
  - Pneumonia [Not Recovered/Not Resolved]
  - Fatigue [Not Recovered/Not Resolved]
  - Dysphagia [Unknown]

NARRATIVE: CASE EVENT DATE: 201509
